FAERS Safety Report 8990389 (Version 5)
Quarter: 2013Q3

REPORT INFORMATION
  Report Type: Spontaneous
  Country: US (occurrence: US)
  Receive Date: 20121228
  Receipt Date: 20130930
  Transmission Date: 20140515
  Serious: Yes (Hospitalization, Disabling, Other)
  Sender: FDA-Public Use
  Company Number: US-009507513-1212USA009957

PATIENT
  Sex: Female
  Weight: 72.11 kg

DRUGS (8)
  1. FOSAMAX [Suspect]
     Indication: OSTEOPENIA
     Dosage: 70 MG, UNK
     Route: 048
     Dates: start: 200407
  2. FOSAMAX [Suspect]
     Indication: OSTEOPENIA
     Dosage: 35 MG, UNK
     Route: 048
  3. CORTICOSTEROIDS (UNSPECIFIED) [Concomitant]
     Dosage: UNK
     Dates: start: 1985, end: 2009
  4. HORMONES (UNSPECIFIED) [Concomitant]
     Dosage: UNK
     Dates: start: 2000, end: 2010
  5. PREMPRO [Concomitant]
     Indication: MENOPAUSAL SYMPTOMS
     Dosage: 625 MG, QD
     Dates: start: 2000, end: 2010
  6. VITAMINS (UNSPECIFIED) [Concomitant]
     Dosage: 1 DF, QD
     Dates: start: 2000, end: 2012
  7. CITRACAL [Concomitant]
     Dosage: 600 MG, TID
     Dates: start: 2000, end: 2012
  8. CALCIUM (UNSPECIFIED) [Concomitant]
     Indication: OSTEOPENIA

REACTIONS (30)
  - Intramedullary rod insertion [Recovering/Resolving]
  - Intramedullary rod insertion [Recovering/Resolving]
  - Medical device removal [Recovering/Resolving]
  - Femur fracture [Not Recovered/Not Resolved]
  - Removal of internal fixation [Recovering/Resolving]
  - Bone disorder [Not Recovered/Not Resolved]
  - Osteoporosis [Not Recovered/Not Resolved]
  - Low turnover osteopathy [Not Recovered/Not Resolved]
  - Multiple fractures [Not Recovered/Not Resolved]
  - Femur fracture [Unknown]
  - Femur fracture [Recovering/Resolving]
  - Femur fracture [Recovering/Resolving]
  - Hypertension [Unknown]
  - Fracture nonunion [Recovering/Resolving]
  - Arthritis [Unknown]
  - Sleep disorder [Unknown]
  - Raynaud^s phenomenon [Unknown]
  - Neuralgia [Unknown]
  - Limb injury [Unknown]
  - Tendon disorder [Unknown]
  - Bursitis [Unknown]
  - Hypercholesterolaemia [Unknown]
  - Fibromyalgia [Unknown]
  - Pain [Unknown]
  - Haemorrhagic anaemia [Unknown]
  - Supraventricular tachycardia [Unknown]
  - Dehydration [Unknown]
  - Cardiac disorder [Unknown]
  - Liver function test abnormal [Unknown]
  - Muscle spasms [Unknown]
